FAERS Safety Report 13698691 (Version 2)
Quarter: 2017Q2

REPORT INFORMATION
  Report Type: Report from Study
  Country: US (occurrence: US)
  Receive Date: 20170628
  Receipt Date: 20170628
  Transmission Date: 20170830
  Serious: No
  Sender: FDA-Public Use
  Company Number: PHEH2017US019138

PATIENT
  Sex: Female

DRUGS (1)
  1. TRAVATAN Z [Suspect]
     Active Substance: TRAVOPROST
     Indication: PRODUCT USED FOR UNKNOWN INDICATION
     Route: 065

REACTIONS (6)
  - Eye pruritus [Unknown]
  - Hypersensitivity [Unknown]
  - Intraocular pressure decreased [Unknown]
  - Pruritus generalised [Unknown]
  - Urticaria [Recovered/Resolved]
  - Eye swelling [Unknown]
